FAERS Safety Report 8443196-7 (Version None)
Quarter: 2012Q2

REPORT INFORMATION
  Report Type: 
  Country: None (occurrence: None)
  Receive Date: 20120617
  Receipt Date: 20120605
  Transmission Date: 20120825
  Serious: Yes (Other)
  Sender: FDA-Public Use
  Company Number: JP-VERTEX PHARMACEUTICALS INC.-AE-2012-008526

PATIENT
  Age: 70 Year
  Sex: Male

DRUGS (7)
  1. RHYTHMY [Concomitant]
     Route: 048
  2. FAMOTIDINE [Concomitant]
     Route: 048
     Dates: start: 20120423, end: 20120428
  3. RIBAVIRIN [Concomitant]
     Indication: HEPATITIS C
     Route: 048
     Dates: start: 20120419, end: 20120501
  4. PEGINTERFERON ALFA-2B [Concomitant]
     Indication: HEPATITIS C
     Route: 051
     Dates: start: 20120419, end: 20120501
  5. MEILAX [Concomitant]
     Route: 048
     Dates: start: 20120507
  6. BROTIZOLAM [Concomitant]
     Route: 048
  7. TELAVIC (TELAPREVIR) [Suspect]
     Indication: HEPATITIS C
     Route: 048
     Dates: start: 20120419, end: 20120501

REACTIONS (1)
  - DELIRIUM [None]
